FAERS Safety Report 19622888 (Version 3)
Quarter: 2021Q3

REPORT INFORMATION
  Report Type: Spontaneous
  Country: US (occurrence: US)
  Receive Date: 20210728
  Receipt Date: 20210817
  Transmission Date: 20211014
  Serious: No
  Sender: FDA-Public Use
  Company Number: US-LUPIN PHARMACEUTICALS INC.-2021-12950

PATIENT
  Age: 70 Year
  Sex: Female
  Weight: 63.49 kg

DRUGS (1)
  1. AMLODIPINE BESYLATE TABLETS USP, 2.5 MG [Suspect]
     Active Substance: AMLODIPINE BESYLATE
     Indication: HYPERTENSION
     Dosage: 2.5 MILLIGRAM, QD, ONCE AT NIGHT
     Route: 048
     Dates: start: 202105, end: 202107

REACTIONS (3)
  - Poor quality product administered [Unknown]
  - No adverse event [Unknown]
  - Product physical consistency issue [Unknown]

NARRATIVE: CASE EVENT DATE: 2021
